FAERS Safety Report 15786135 (Version 1)
Quarter: 2019Q1

REPORT INFORMATION
  Report Type: Spontaneous
  Country: CN (occurrence: CN)
  Receive Date: 20190103
  Receipt Date: 20190103
  Transmission Date: 20190417
  Serious: Yes (Death, Other)
  Sender: FDA-Public Use
  Company Number: CN-PFIZER INC-2019000806

PATIENT
  Age: 21 Year
  Sex: Male
  Weight: 78 kg

DRUGS (1)
  1. METHOTREXATE. [Suspect]
     Active Substance: METHOTREXATE
     Indication: CHEMOTHERAPY
     Dosage: 5.7 G, 1X/DAY
     Route: 041
     Dates: start: 20181009, end: 20181009

REACTIONS (5)
  - Multiple organ dysfunction syndrome [Fatal]
  - Renal impairment [Fatal]
  - Liver injury [Unknown]
  - Circulatory collapse [Fatal]
  - Toxic epidermal necrolysis [Unknown]

NARRATIVE: CASE EVENT DATE: 201810
